FAERS Safety Report 7584773-5 (Version None)
Quarter: 2011Q2

REPORT INFORMATION
  Report Type: 
  Country: None (occurrence: None)
  Receive Date: 20110630
  Receipt Date: 20110621
  Transmission Date: 20111010
  Serious: Yes (Hospitalization, Other)
  Sender: FDA-Public Use
  Company Number: PHHO2011US06031

PATIENT
  Sex: Female

DRUGS (15)
  1. NOVOLOG [Suspect]
     Dosage: UNK
     Dates: start: 20110202, end: 20110203
  2. NOVOLOG [Suspect]
     Dosage: UNK
     Dates: start: 20110205, end: 20110214
  3. ACTOS [Suspect]
     Dosage: UNK
     Dates: start: 20101215, end: 20101226
  4. LANTUS [Suspect]
     Dosage: UNK
     Dates: start: 20110202, end: 20110203
  5. LANTUS [Suspect]
     Dosage: NO TREATMENT
     Dates: start: 20110215, end: 20110217
  6. INSULIN LISPRO [Suspect]
  7. RANEXA [Suspect]
  8. SAXAGLIPTIN [Suspect]
  9. LANTUS [Suspect]
     Dosage: UNK
     Dates: start: 20110218
  10. NOVOLOG [Suspect]
     Dosage: NO TREATMENT
     Dates: start: 20110204, end: 20110204
  11. NITRATES [Concomitant]
  12. DICLOFENAC SODIUM [Suspect]
  13. LANTUS [Suspect]
     Dosage: NO TREATMENT
     Dates: start: 20110204, end: 20110204
  14. ASPIRIN [Concomitant]
  15. LANTUS [Suspect]
     Dosage: UNK
     Dates: start: 20110205, end: 20110214

REACTIONS (9)
  - ABDOMINAL PAIN [None]
  - NON-CARDIAC CHEST PAIN [None]
  - DEPRESSION [None]
  - ASTHMA [None]
  - GASTROOESOPHAGEAL REFLUX DISEASE [None]
  - SUICIDAL IDEATION [None]
  - RENAL FAILURE ACUTE [None]
  - CARDIAC FAILURE CONGESTIVE [None]
  - HYPERHIDROSIS [None]
